FAERS Safety Report 18062070 (Version 2)
Quarter: 2020Q3

REPORT INFORMATION
  Report Type: Report from Study
  Country: US (occurrence: US)
  Receive Date: 20200723
  Receipt Date: 20200803
  Transmission Date: 20201103
  Serious: Yes (Life-Threatening)
  Sender: FDA-Public Use
  Company Number: US-ELI_LILLY_AND_COMPANY-US202007009481

PATIENT
  Age: 64 Year
  Sex: Male
  Weight: 66.68 kg

DRUGS (6)
  1. PACLITAXEL ALBUMIN [Concomitant]
     Active Substance: PACLITAXEL
     Indication: PANCREATIC CARCINOMA METASTATIC
     Dosage: 146 MG, WEEKLY (1/W)
     Route: 042
     Dates: start: 20180509, end: 20180702
  2. NAPABUCASIN [Concomitant]
     Active Substance: NAPABUCASIN
     Indication: PANCREATIC CARCINOMA METASTATIC
     Dosage: 160 MG, BID
     Route: 048
     Dates: start: 20180702, end: 20180704
  3. NAPABUCASIN [Concomitant]
     Active Substance: NAPABUCASIN
     Dosage: 160 MG, BID
     Route: 048
  4. GEMCITABINE HYDROCHLORIDE. [Suspect]
     Active Substance: GEMCITABINE HYDROCHLORIDE
     Indication: PANCREATIC CARCINOMA METASTATIC
     Dosage: 1164 MG, WEEKLY (1/W)
     Route: 042
     Dates: start: 20180509, end: 20180702
  5. PACLITAXEL ALBUMIN [Concomitant]
     Active Substance: PACLITAXEL
     Dosage: 146 MG, WEEKLY (1/W)
     Route: 042
  6. GEMCITABINE HYDROCHLORIDE. [Suspect]
     Active Substance: GEMCITABINE HYDROCHLORIDE
     Dosage: 1164 MG, WEEKLY (1/W)
     Route: 042
     Dates: start: 20180509

REACTIONS (1)
  - Platelet count decreased [Recovered/Resolved]

NARRATIVE: CASE EVENT DATE: 20180709
